FAERS Safety Report 7688256-3 (Version None)
Quarter: 2011Q3

REPORT INFORMATION
  Report Type: 
  Country: None (occurrence: None)
  Receive Date: 20110817
  Receipt Date: 20110810
  Transmission Date: 20111222
  Serious: Yes (Hospitalization, Other)
  Sender: FDA-Public Use
  Company Number: US-AMGEN-USASP2011040815

PATIENT
  Age: 72 Year
  Sex: Male

DRUGS (5)
  1. AVASTIN [Concomitant]
     Indication: RENAL CANCER METASTATIC
  2. FLUOROURACIL [Concomitant]
     Indication: RENAL CANCER METASTATIC
  3. OXALIPLATIN [Concomitant]
     Indication: RECTAL CANCER METASTATIC
  4. NEULASTA [Suspect]
     Indication: CHEMOTHERAPY
     Dates: start: 20050101, end: 20110413
  5. LEUCOVORIN CALCIUM [Concomitant]
     Indication: RECTAL CANCER METASTATIC

REACTIONS (8)
  - CEREBROVASCULAR ACCIDENT [None]
  - RESPIRATORY TRACT INFECTION VIRAL [None]
  - ACUTE RESPIRATORY DISTRESS SYNDROME [None]
  - PYREXIA [None]
  - RALES [None]
  - COUGH [None]
  - ASTHENIA [None]
  - DYSPHONIA [None]
